FAERS Safety Report 9671293 (Version 1)
Quarter: 2013Q4

REPORT INFORMATION
  Report Type: Spontaneous
  Country: BG (occurrence: BG)
  Receive Date: 20131106
  Receipt Date: 20131106
  Transmission Date: 20140711
  Serious: Yes (Other)
  Sender: FDA-Public Use
  Company Number: BG-B.I. PHARMACEUTICALS,INC./RIDGEFIELD-2013-BI-35111BQ

PATIENT
  Age: 80 Year
  Sex: Female

DRUGS (4)
  1. PRADAXA [Suspect]
     Indication: ATRIAL FIBRILLATION
     Dosage: 1.2222 MG
     Route: 048
     Dates: start: 20130501
  2. CO-DIOVAN [Concomitant]
     Indication: HYPERTENSION
     Route: 048
     Dates: start: 20130601, end: 20130701
  3. RENOVIA [Concomitant]
     Indication: HYPERTENSION
     Route: 048
  4. CIPRALEX [Concomitant]
     Indication: ANTIDEPRESSANT THERAPY
     Route: 048

REACTIONS (2)
  - Haemorrhage subcutaneous [Recovered/Resolved with Sequelae]
  - Oedema peripheral [Recovered/Resolved with Sequelae]
